FAERS Safety Report 5057010-3 (Version None)
Quarter: 2006Q2

REPORT INFORMATION
  Report Type: 
  Country: None (occurrence: None)
  Receive Date: 20060622
  Receipt Date: 20060406
  Transmission Date: 20061013
  Serious: Yes (Life-Threatening, Hospitalization, Other)
  Sender: FDA-Public Use
  Company Number: US-JNJFOC-20060307572

PATIENT
  Age: 19 Year
  Sex: Male

DRUGS (5)
  1. FENTANYL TRANSDERMAL SYSTEM [Suspect]
     Indication: DRUG USE FOR UNKNOWN INDICATION
     Dosage: ORAL
     Route: 048
  2. MARIJUANA (CANNABIS) [Suspect]
     Indication: DRUG USE FOR UNKNOWN INDICATION
  3. COCAINE (COCAINE) [Suspect]
     Indication: DRUG USE FOR UNKNOWN INDICATION
  4. SOMA [Suspect]
     Indication: DRUG USE FOR UNKNOWN INDICATION
  5. ALCOHOL (ETHANOL) [Suspect]
     Indication: DRUG USE FOR UNKNOWN INDICATION

REACTIONS (2)
  - COMA [None]
  - INTENTIONAL DRUG MISUSE [None]
